FAERS Safety Report 4957236-0 (Version None)
Quarter: 2006Q1

REPORT INFORMATION
  Report Type: 
  Country: None (occurrence: None)
  Receive Date: 20060329
  Receipt Date: 20050112
  Transmission Date: 20060701
  Serious: Yes (Death, Hospitalization)
  Sender: FDA-Public Use
  Company Number: US-MERCK-0501USA01898

PATIENT
  Age: 44 Year
  Sex: Female
  Weight: 58 kg

DRUGS (2)
  1. VIOXX [Suspect]
     Indication: ARTHRITIS
     Route: 048
     Dates: start: 19990101, end: 20020701
  2. FLEXERIL [Concomitant]
     Route: 065

REACTIONS (9)
  - CEREBROVASCULAR SPASM [None]
  - DEPRESSED LEVEL OF CONSCIOUSNESS [None]
  - ESCHERICHIA URINARY TRACT INFECTION [None]
  - HEADACHE [None]
  - HYPOTENSION [None]
  - INTRACRANIAL ANEURYSM [None]
  - PUPIL FIXED [None]
  - RESPIRATORY RATE DECREASED [None]
  - SUBARACHNOID HAEMORRHAGE [None]
